FAERS Safety Report 16447307 (Version 2)
Quarter: 2019Q3

REPORT INFORMATION
  Report Type: Other
  Country: DE (occurrence: DE)
  Receive Date: 20190618
  Receipt Date: 20190801
  Transmission Date: 20191004
  Serious: Yes (Other)
  Sender: FDA-Public Use
  Company Number: DE-CELLTRION INC.-2019DE021783

PATIENT

DRUGS (3)
  1. REBIF [Interacting]
     Active Substance: INTERFERON BETA-1A
     Indication: MULTIPLE SCLEROSIS
     Dosage: 22 UG, 0.33 WEEK, STARTED IN 2016 OR EARLIER
     Route: 065
  2. TRASTUZUMAB (UNKNOWN) [Suspect]
     Active Substance: TRASTUZUMAB
     Indication: BREAST CANCER
     Dosage: UNK
     Dates: start: 201811
  3. BRONCHICUM [CIMICIFUGA RACEMOSA EXTRACT;FOENICULUM VULGARE EXTRACT;FOE [Concomitant]

REACTIONS (3)
  - Drug interaction [Unknown]
  - Type 2 diabetes mellitus [Unknown]
  - Breast cancer [Not Recovered/Not Resolved]

NARRATIVE: CASE EVENT DATE: 201811
